FAERS Safety Report 7606188-3 (Version None)
Quarter: 2011Q3

REPORT INFORMATION
  Report Type: 
  Country: None (occurrence: None)
  Receive Date: 20110705
  Receipt Date: 20110620
  Transmission Date: 20111222
  Serious: Yes (Hospitalization)
  Sender: FDA-Public Use
  Company Number: 2011MA007777

PATIENT
  Age: 27 Year
  Sex: Female

DRUGS (1)
  1. METFORMIN HCL [Suspect]
     Indication: POLYCYSTIC OVARIES
     Dosage: 20 GM,

REACTIONS (8)
  - HAEMODIALYSIS [None]
  - LACTIC ACIDOSIS [None]
  - TACHYPNOEA [None]
  - CONFUSIONAL STATE [None]
  - ABDOMINAL PAIN [None]
  - HYPOTENSION [None]
  - TACHYCARDIA [None]
  - PELVIC PAIN [None]
